FAERS Safety Report 7883062-9 (Version None)
Quarter: 2011Q4

REPORT INFORMATION
  Report Type: 
  Country: None (occurrence: None)
  Receive Date: 20111102
  Receipt Date: 20111025
  Transmission Date: 20120403
  Serious: Yes (Hospitalization)
  Sender: FDA-Public Use
  Company Number: 2007BI005601

PATIENT
  Age: 45 Year
  Sex: Female

DRUGS (2)
  1. AVONEX [Suspect]
     Indication: MULTIPLE SCLEROSIS
     Route: 030
     Dates: start: 19970601, end: 20030901
  2. AVONEX [Suspect]
     Route: 030
     Dates: start: 20030801, end: 20061001

REACTIONS (2)
  - NEOPLASM MALIGNANT [None]
  - GAIT DISTURBANCE [None]
